FAERS Safety Report 5123364-2 (Version None)
Quarter: 2006Q4

REPORT INFORMATION
  Report Type: 
  Country: None (occurrence: None)
  Receive Date: 20061005
  Receipt Date: 20060905
  Transmission Date: 20070319
  Serious: Yes (Death, Life-Threatening)
  Sender: FDA-Public Use
  Company Number: 2006-143427-NL

PATIENT
  Age: 40 Year
  Sex: Male

DRUGS (7)
  1. DANAPAROID SODIUM [Suspect]
     Indication: DISSEMINATED INTRAVASCULAR COAGULATION
     Dosage: 2500 ANTI-XA INTRAVENOUS DRIP
     Route: 041
     Dates: start: 20051201, end: 20051202
  2. AMPICILLIN SODIUM/SULBACTAM SODIUM [Concomitant]
  3. IMMUNE GLOBULIN INTRAVENOUS (HUMAN) [Concomitant]
  4. GABEXATE MESILATE [Concomitant]
  5. ANTITHROMBIN III [Concomitant]
  6. ULINASTATIN [Concomitant]
  7. HAPTOGLOBIN [Concomitant]

REACTIONS (11)
  - ASPARTATE AMINOTRANSFERASE INCREASED [None]
  - BLOOD LACTATE DEHYDROGENASE INCREASED [None]
  - CONDITION AGGRAVATED [None]
  - DISEASE PROGRESSION [None]
  - DISSEMINATED INTRAVASCULAR COAGULATION [None]
  - HEPATIC FUNCTION ABNORMAL [None]
  - PLATELET COUNT INCREASED [None]
  - PROTEIN TOTAL DECREASED [None]
  - RENAL IMPAIRMENT [None]
  - SEPSIS [None]
  - THERMAL BURN [None]
